FAERS Safety Report 7282485-9 (Version None)
Quarter: 2011Q1

REPORT INFORMATION
  Report Type: 
  Country: None (occurrence: None)
  Receive Date: 20110209
  Receipt Date: 20110204
  Transmission Date: 20110831
  Serious: Yes (Death, Other)
  Sender: FDA-Public Use
  Company Number: JP-GENZYME-FLUD-1000696

PATIENT
  Age: 16 Year
  Sex: Female

DRUGS (4)
  1. THYMOGLOBULIN [Suspect]
     Indication: STEM CELL TRANSPLANT
     Dosage: UNK
     Route: 065
  2. MELPHALAN [Suspect]
     Indication: STEM CELL TRANSPLANT
     Dosage: 140 MG/M2, UNK
     Route: 065
  3. FLUDARA [Suspect]
     Indication: STEM CELL TRANSPLANT
     Dosage: 180 MG/M2, UNK
     Route: 065
  4. TACROLIMUS [Concomitant]
     Indication: PROPHYLAXIS AGAINST GRAFT VERSUS HOST DISEASE
     Dosage: 0.02 MG/KG, QD
     Route: 042

REACTIONS (2)
  - ACUTE GRAFT VERSUS HOST DISEASE [None]
  - SUBARACHNOID HAEMORRHAGE [None]
